FAERS Safety Report 5422303-4 (Version None)
Quarter: 2007Q3

REPORT INFORMATION
  Report Type: 
  Country: None (occurrence: None)
  Receive Date: 20070820
  Receipt Date: 20070808
  Transmission Date: 20080115
  Serious: Yes (Hospitalization)
  Sender: FDA-Public Use
  Company Number: 2007-02732

PATIENT
  Age: 68 Year
  Sex: Female
  Weight: 54.2 kg

DRUGS (10)
  1. VELCADE [Suspect]
     Indication: MULTIPLE MYELOMA
     Dosage: 0.70 MG, INTRAVENOUS
     Route: 042
     Dates: start: 20070418, end: 20070725
  2. CARBOPLATIN [Suspect]
     Dosage: 220.00 MG, INTRAVENOUS
     Route: 042
  3. EPIRUBICIN [Suspect]
     Indication: ADENOCARCINOMA
     Dosage: INTRAVENOUS
     Route: 042
     Dates: start: 20070323, end: 20070702
  4. CAPECITABINE(CAPECITABINE) [Suspect]
     Dosage: 500.00 MG, INTRAVENOUS
     Route: 042
     Dates: start: 20070323, end: 20070725
  5. E.45 (PARAFFIN, LIQUID, LANOLIN, PARAFFIN SOFT) [Concomitant]
  6. DOMPERIDONE (DOMPERIDONE) [Concomitant]
  7. LOPERAMIDE HCL [Concomitant]
  8. NYSTATIN [Concomitant]
  9. BENZYDAMINE (BENZYDAMINE) [Concomitant]
  10. MOVICOL (SODIUM BICARBONATE, SODIUM CHLORIDE, MACROGOL, POTASSIUM CHLO [Concomitant]

REACTIONS (2)
  - DRUG INEFFECTIVE [None]
  - PAIN [None]
